FAERS Safety Report 9030718 (Version 1)
Quarter: 2013Q1

REPORT INFORMATION
  Report Type: Spontaneous
  Country: US (occurrence: US)
  Receive Date: 20130123
  Receipt Date: 20130123
  Transmission Date: 20140127
  Serious: No
  Sender: FDA-Public Use
  Company Number: US-PFIZER INC-2013027944

PATIENT
  Sex: Female

DRUGS (4)
  1. METHOTREXATE SODIUM [Suspect]
  2. PREDNISONE [Suspect]
  3. SULFAMETHOXAZOLE/TRIMETHOPRIM [Suspect]
  4. CODEINE PHOSPHATE/PARACETAMOL [Suspect]

REACTIONS (1)
  - Drug hypersensitivity [Not Recovered/Not Resolved]
